FAERS Safety Report 4506023-6 (Version None)
Quarter: 2004Q4

REPORT INFORMATION
  Report Type: 
  Country: None (occurrence: None)
  Receive Date: 20041025
  Receipt Date: 20031211
  Transmission Date: 20050328
  Serious: Yes (Other)
  Sender: FDA-Public Use
  Company Number: US-JNJFOC-20030800469

PATIENT
  Age: 60 Year
  Sex: Female
  Weight: 88.4514 kg

DRUGS (17)
  1. REMICADE [Suspect]
     Indication: RHEUMATOID ARTHRITIS
     Dosage: SEE IMAGE
     Route: 042
     Dates: start: 20020116
  2. REMICADE [Suspect]
     Indication: RHEUMATOID ARTHRITIS
     Dosage: SEE IMAGE
     Route: 042
     Dates: start: 20030327
  3. REMICADE [Suspect]
     Indication: RHEUMATOID ARTHRITIS
     Dosage: SEE IMAGE
     Route: 042
     Dates: start: 20030508
  4. REMICADE [Suspect]
     Indication: RHEUMATOID ARTHRITIS
     Dosage: SEE IMAGE
     Route: 042
     Dates: start: 20030618
  5. METHOTREXATE [Concomitant]
  6. PREDNISONE [Concomitant]
  7. SALSALATE (SALSALATE) [Concomitant]
  8. ULTRACET [Concomitant]
  9. FLEXERIL [Concomitant]
  10. FOSAMAX [Concomitant]
  11. SYNTHROID [Concomitant]
  12. TOPRAMAX (TOPIRAMATE) [Concomitant]
  13. FOLIC ACID [Concomitant]
  14. IMITREX [Concomitant]
  15. FIORICET [Concomitant]
  16. HCTZ/TRIAMTERENE (HYDROCHLOROTHIAZIDE) [Concomitant]
  17. REMICADE [Suspect]

REACTIONS (4)
  - ATELECTASIS [None]
  - CHEST DISCOMFORT [None]
  - PARONYCHIA [None]
  - SYSTEMIC LUPUS ERYTHEMATOSUS [None]
